FAERS Safety Report 8556373-1 (Version None)
Quarter: 2012Q3

REPORT INFORMATION
  Report Type: 
  Country: None (occurrence: None)
  Receive Date: 20120801
  Receipt Date: 20120723
  Transmission Date: 20120928
  Serious: Yes (Hospitalization)
  Sender: FDA-Public Use
  Company Number: FR-JNJFOC-20120712455

PATIENT
  Age: 77 Year
  Sex: Female

DRUGS (10)
  1. PREDNISONE TAB [Concomitant]
     Route: 065
  2. ASPIRIN [Concomitant]
     Route: 065
  3. CRESTOR [Concomitant]
     Route: 065
  4. REMICADE [Suspect]
     Route: 042
     Dates: start: 20111130
  5. SECTRAL [Concomitant]
     Route: 065
  6. CORVASAL [Concomitant]
     Route: 065
  7. METHOTREXATE [Concomitant]
     Route: 065
  8. REMICADE [Suspect]
     Indication: PRODUCT USED FOR UNKNOWN INDICATION
     Route: 042
     Dates: start: 20120117
  9. REMICADE [Suspect]
     Dosage: INFLIXIMAB STOPPED AFTER THE PATIENT RECEIVED 6 INFUSIONS
     Route: 042
     Dates: start: 20100701, end: 20110401
  10. RECOMBINANT HEPATITIS B SURFACE ANTIGEN [Suspect]
     Indication: IMMUNISATION
     Route: 065
     Dates: start: 20120117, end: 20120117

REACTIONS (6)
  - PRURITUS [None]
  - CHILLS [None]
  - INFUSION RELATED REACTION [None]
  - NERVOUS SYSTEM DISORDER [None]
  - DYSPNOEA [None]
  - CONTRAINDICATION TO VACCINATION [None]
